FAERS Safety Report 25747450 (Version 1)
Quarter: 2025Q3

REPORT INFORMATION
  Report Type: Spontaneous
  Country: US (occurrence: US)
  Receive Date: 20250901
  Receipt Date: 20250901
  Transmission Date: 20251020
  Serious: No
  Sender: TAKEDA
  Company Number: US-TAKEDA-2025TUS076374

PATIENT

DRUGS (1)
  1. TRINTELLIX [Suspect]
     Active Substance: VORTIOXETINE HYDROBROMIDE
     Indication: Product used for unknown indication
     Dosage: 20 MILLIGRAM, QOD

REACTIONS (3)
  - Inappropriate schedule of product administration [Unknown]
  - Rapid eye movements sleep abnormal [Unknown]
  - Nausea [Unknown]
